FAERS Safety Report 11612146 (Version 4)
Quarter: 2015Q4

REPORT INFORMATION
  Report Type: Spontaneous
  Country: US (occurrence: US)
  Receive Date: 20151008
  Receipt Date: 20151215
  Transmission Date: 20160304
  Serious: No
  Sender: FDA-Public Use
  Company Number: US-GLAXOSMITHKLINE-US2015GSK130827

PATIENT
  Sex: Male
  Weight: 70.75 kg

DRUGS (2)
  1. TANZEUM [Suspect]
     Active Substance: ALBIGLUTIDE
     Dosage: 30 MG, WE
     Route: 042
     Dates: start: 201508
  2. TANZEUM [Suspect]
     Active Substance: ALBIGLUTIDE
     Indication: TYPE 2 DIABETES MELLITUS
     Dosage: 30 MG, WE
     Route: 042
     Dates: start: 20150818

REACTIONS (7)
  - Device use error [Unknown]
  - Product quality issue [Unknown]
  - Device leakage [Unknown]
  - Exposure via direct contact [Unknown]
  - Device difficult to use [Unknown]
  - Dysgeusia [Recovered/Resolved]
  - Accidental exposure to product [Unknown]
